FAERS Safety Report 7271880-X (Version None)
Quarter: 2011Q1

REPORT INFORMATION
  Report Type: 
  Country: None (occurrence: None)
  Receive Date: 20110127
  Receipt Date: 20110117
  Transmission Date: 20110831
  Serious: Yes (Hospitalization)
  Sender: FDA-Public Use
  Company Number: 808478

PATIENT
  Age: 45 Year
  Sex: Male

DRUGS (9)
  1. IFOSFAMIDE [Suspect]
     Indication: NEOPLASM MALIGNANT
     Dosage: 5.5 G GRAM(S)
  2. (LOSEC /00661201/) [Concomitant]
  3. ETOPOSIDE [Suspect]
     Indication: NEOPLASM MALIGNANT
     Dosage: 110 MG MILLIGRAM(S)
  4. PREDNISOLONE [Concomitant]
  5. VINORELBINE TARTRATE [Suspect]
     Indication: NEOPLASM MALIGNANT
     Dosage: 46 MG MILLIGRAM (S)
     Dates: start: 20040303
  6. CYTARABINE [Suspect]
     Indication: NEOPLASM MALIGNANT
     Dosage: 3.7 G GRAM(S)
     Dates: start: 20040305
  7. GEMZAR [Suspect]
     Indication: NEOPLASM MALIGNANT
     Dosage: 1.8 G GRAM(S), INTRAVENOUS
     Route: 042
     Dates: start: 20040303
  8. (PEGFILGRASTIM) [Suspect]
     Indication: PRODUCT USED FOR UNKNOWN INDICATION
     Dosage: 6 MG MILLIGRAM(S)
     Dates: start: 20040310
  9. NAPROXEN [Concomitant]

REACTIONS (5)
  - SEPSIS [None]
  - SYNCOPE [None]
  - CELLULITIS [None]
  - EPISTAXIS [None]
  - FEBRILE NEUTROPENIA [None]
